FAERS Safety Report 8431696 (Version 5)
Quarter: 2013Q2

REPORT INFORMATION
  Report Type: Spontaneous
  Country: US (occurrence: US)
  Receive Date: 20120228
  Receipt Date: 20130502
  Transmission Date: 20140414
  Serious: Yes (Hospitalization, Other)
  Sender: FDA-Public Use
  Company Number: US-ASTRAZENECA-2012SE11837

PATIENT
  Age: 62 Year
  Sex: Female
  Weight: 76.7 kg

DRUGS (10)
  1. CRESTOR [Suspect]
     Indication: BLOOD CHOLESTEROL INCREASED
     Route: 048
     Dates: start: 20070621
  2. CRESTOR [Suspect]
     Indication: BLOOD CHOLESTEROL INCREASED
     Route: 048
  3. CRESTOR [Suspect]
     Indication: BLOOD CHOLESTEROL INCREASED
     Route: 048
  4. ACTOS [Suspect]
     Indication: DIABETES MELLITUS
     Route: 048
     Dates: start: 20070621
  5. GLIPIZIDE [Concomitant]
     Indication: TYPE 2 DIABETES MELLITUS
  6. HCT [Concomitant]
     Indication: HYPERTENSION
     Route: 048
  7. LEVOXYL [Concomitant]
     Indication: HYPOTHYROIDISM
     Route: 048
  8. METFORMIN [Concomitant]
     Indication: DIABETES MELLITUS
  9. LISINOPRIL [Concomitant]
     Indication: HYPERTENSION
     Route: 048
  10. CIPRO [Concomitant]
     Dates: start: 20110722, end: 20110727

REACTIONS (9)
  - Thyroid cancer [Unknown]
  - Tendon rupture [Unknown]
  - Tendon disorder [Unknown]
  - Myalgia [Recovered/Resolved]
  - Hypertension [Unknown]
  - Laboratory test abnormal [Unknown]
  - Type 2 diabetes mellitus [Unknown]
  - Lipids increased [Unknown]
  - Muscle spasms [Unknown]
